FAERS Safety Report 17877677 (Version 4)
Quarter: 2020Q3

REPORT INFORMATION
  Report Type: Spontaneous
  Country: US (occurrence: US)
  Receive Date: 20200609
  Receipt Date: 20200902
  Transmission Date: 20201103
  Serious: Yes (Other)
  Sender: FDA-Public Use
  Company Number: US-PFIZER INC-2020222011

PATIENT
  Age: 72 Year
  Sex: Male
  Weight: 68.03 kg

DRUGS (2)
  1. TOVIAZ [Suspect]
     Active Substance: FESOTERODINE FUMARATE
     Dosage: 4 MG, DAILY (1 PILL A DAY)
     Route: 048
  2. TOVIAZ [Suspect]
     Active Substance: FESOTERODINE FUMARATE
     Dosage: 8 MG (2 TABLETS), 1X/DAY
     Route: 048
     Dates: start: 20200731

REACTIONS (2)
  - Drug ineffective [Unknown]
  - Spinal stroke [Unknown]

NARRATIVE: CASE EVENT DATE: 20200731
